FAERS Safety Report 12437561 (Version 2)
Quarter: 2016Q3

REPORT INFORMATION
  Report Type: Spontaneous
  Country: JP (occurrence: JP)
  Receive Date: 20160606
  Receipt Date: 20160810
  Transmission Date: 20161109
  Serious: Yes (Hospitalization)
  Sender: FDA-Public Use
  Company Number: JP-009507513-1606JPN001734

PATIENT
  Age: 85 Year
  Sex: Male

DRUGS (7)
  1. JANUVIA [Suspect]
     Active Substance: SITAGLIPTIN PHOSPHATE
     Indication: DIABETES MELLITUS
     Dosage: 50 MG, QD
     Route: 048
     Dates: start: 2014
  2. ZYLORIC [Concomitant]
     Active Substance: ALLOPURINOL
     Dosage: 100 MG, QD
     Route: 048
  3. AMITIZA [Concomitant]
     Active Substance: LUBIPROSTONE
     Dosage: 24 MICROGRAM, BID
     Route: 048
  4. TAKEPRON [Concomitant]
     Active Substance: LANSOPRAZOLE
     Dosage: 15 MG, QD
     Route: 048
  5. ALLEGRA [Concomitant]
     Active Substance: FEXOFENADINE HYDROCHLORIDE
     Dosage: 60 MG, BID
     Route: 048
  6. MAGMITT [Concomitant]
     Active Substance: MAGNESIUM OXIDE
     Dosage: 330 MG, BID
     Route: 048
  7. MICAMLO [Concomitant]
     Active Substance: AMLODIPINE BESYLATE\TELMISARTAN
     Dosage: 40 MG, QD
     Route: 048

REACTIONS (3)
  - Nausea [Unknown]
  - Dizziness [Unknown]
  - Hypoglycaemia [Unknown]
